FAERS Safety Report 8258735-9 (Version None)
Quarter: 2012Q2

REPORT INFORMATION
  Report Type: 
  Country: None (occurrence: None)
  Receive Date: 20120404
  Receipt Date: 20120404
  Transmission Date: 20120825
  Serious: Yes (Hospitalization)
  Sender: FDA-Public Use
  Company Number: None

PATIENT
  Age: 79 Year
  Sex: Female

DRUGS (9)
  1. QVAR 40 [Concomitant]
  2. METOPROLOL SUCCINATE [Concomitant]
  3. VENTOLIN [Concomitant]
  4. PRADAXA [Suspect]
     Indication: ATRIAL FIBRILLATION
     Dosage: 150MG
     Route: 048
  5. ASPIRIN [Concomitant]
     Indication: PRODUCT USED FOR UNKNOWN INDICATION
     Dosage: 81MG
     Route: 048
  6. PRILOSEC [Concomitant]
  7. LIPITOR [Concomitant]
  8. LASIX [Concomitant]
  9. POTASSIUM [Concomitant]

REACTIONS (6)
  - HAEMATOCRIT DECREASED [None]
  - EPIGASTRIC DISCOMFORT [None]
  - DYSPNOEA [None]
  - ASTHENIA [None]
  - MELAENA [None]
  - GASTROOESOPHAGEAL REFLUX DISEASE [None]
